FAERS Safety Report 8828921 (Version 1)
Quarter: 2012Q4

REPORT INFORMATION
  Report Type: 
  Country: FR (occurrence: FR)
  Receive Date: 20121008
  Receipt Date: 20121008
  Transmission Date: 20130627
  Serious: Yes (Hospitalization)
  Sender: FDA-Public Use
  Company Number: FR-B.I. PHARMACEUTICALS,INC./RIDGEFIELD-2012-FF-01381FF

PATIENT
  Age: 65 Year
  Sex: Female

DRUGS (3)
  1. PRADAXA [Suspect]
     Indication: ATRIAL FIBRILLATION
     Dosage: 220 mg
     Route: 048
     Dates: start: 2012, end: 20120925
  2. LEVOTHYROX [Concomitant]
  3. CORDARONE [Concomitant]

REACTIONS (3)
  - Cardiac tamponade [Recovered/Resolved]
  - Renal failure [Recovered/Resolved]
  - Prothrombin time ratio decreased [Recovered/Resolved]
